FAERS Safety Report 25767516 (Version 2)
Quarter: 2025Q3

REPORT INFORMATION
  Report Type: Spontaneous
  Country: US (occurrence: US)
  Receive Date: 20250905
  Receipt Date: 20250916
  Transmission Date: 20251020
  Serious: No
  Sender: FRESENIUS KABI
  Company Number: US-FreseniusKabi-FK202511978

PATIENT
  Age: 83 Year
  Sex: Female
  Weight: 72.6 kg

DRUGS (32)
  1. HEPARIN SODIUM [Suspect]
     Active Substance: HEPARIN SODIUM
     Indication: Cardiac ablation
  2. HEPARIN SODIUM [Suspect]
     Active Substance: HEPARIN SODIUM
     Indication: Medical device implantation
  3. HEPARIN SODIUM [Suspect]
     Active Substance: HEPARIN SODIUM
  4. HEPARIN SODIUM [Suspect]
     Active Substance: HEPARIN SODIUM
  5. cefazolin (ANCEF) 2 g in sterile water 20 mL syringe [Concomitant]
     Indication: Prophylaxis
     Route: 042
     Dates: start: 20250731
  6. cefazolin (KEFZOL) 2 g in sterile water 20 mL syringe [Concomitant]
     Indication: Prophylaxis
     Route: 042
     Dates: start: 20250731, end: 20250731
  7. furosemide (LASIX) injection 40 mg [Concomitant]
     Indication: Product used for unknown indication
     Route: 042
  8. acetaminophen (TYLENOL) tablet 650 mg [Concomitant]
     Indication: Pyrexia
     Dosage: FREQ: EVERY 6 HOURS PRN ?ROUTE: PO
     Route: 048
  9. acetaminophen (TYLENOL) tablet 650 mg [Concomitant]
     Indication: Pain
  10. albuterol 2.5 mg/3 mL nebulizer solution 2.5mg [Concomitant]
     Indication: Dyspnoea
  11. amiodarone (PACERONE) tablet 200 mg [Concomitant]
     Indication: Product used for unknown indication
     Dosage: FREQ 2 TIMES DALY ?ROUTE: PO?GIVEN ON 31/JUL/2025 AT 20:16 AND 01/AUG/2025 AT 0939
     Route: 048
  12. dextrose 50% injection 12.5-25 g [Concomitant]
     Indication: Blood glucose decreased
  13. digoxin (LANOXIN) tablet 125 mcg [Concomitant]
     Indication: Product used for unknown indication
     Route: 048
  14. empaglifiozin (JARDIANCE) tablet 10 mg [Concomitant]
     Indication: Product used for unknown indication
     Route: 048
  15. heparin 1,000 units/mL injection [Concomitant]
     Indication: Product used for unknown indication
  16. heparin in dextrose 100 units/mL infusion [Concomitant]
     Indication: Product used for unknown indication
  17. hydralazine (APRESOLINE) injection 5  mg [Concomitant]
     Indication: Product used for unknown indication
  18. iodixanol (VISIPAQUE 320) 320 mg/mL injection [Concomitant]
     Indication: Product used for unknown indication
  19. isoproterenol (ISUPREL)4 mcg/mL in sodium chloride 0.9% 50 mL infusion [Concomitant]
     Indication: Product used for unknown indication
  20. LIDOCAINE [Concomitant]
     Active Substance: LIDOCAINE
     Indication: Product used for unknown indication
  21. lidocaine 1%-epinephrine 1:100,000 injection 5 ml [Concomitant]
     Indication: Complication associated with device
  22. methocarbamol (ROBAXIN) tablet 500 mg [Concomitant]
     Indication: Muscle spasms
  23. metoclopramide (REGLAN) tablet 10 mg [Concomitant]
     Indication: Nausea
  24. morphine injection 2 mg [Concomitant]
     Indication: Pain
  25. NITROGLYCERIN [Concomitant]
     Active Substance: NITROGLYCERIN
     Indication: Product used for unknown indication
  26. oxycodone (ROXICODONE) tablet 5 mg [Concomitant]
     Indication: Pain
  27. pantoprazole (PROTONIX) DR tablet 40  mg [Concomitant]
     Indication: Gastrooesophageal reflux disease
  28. pregabalin (LYRICA) capsule 50 mg [Concomitant]
     Indication: Product used for unknown indication
  29. protamine injection [Concomitant]
     Indication: Product used for unknown indication
  30. rivaroxaban (XARELTO) tablet 20 mg [Concomitant]
     Indication: Product used for unknown indication
  31. sacubitril-valsartan (ENTRESTO) 24-26 mg  per tablet 0.5 tablet [Concomitant]
     Indication: Product used for unknown indication
  32. furosemide (LASIX) tablet 20 mg [Concomitant]
     Indication: Product used for unknown indication

REACTIONS (1)
  - Therapeutic product effect decreased [Unknown]
